FAERS Safety Report 18637456 (Version 1)
Quarter: 2020Q4

REPORT INFORMATION
  Report Type: Report from Study
  Country: US (occurrence: US)
  Receive Date: 20201218
  Receipt Date: 20201218
  Transmission Date: 20210114
  Serious: Yes (Other)
  Sender: FDA-Public Use
  Company Number: US-REGENERON PHARMACEUTICALS, INC.-2020-71998

PATIENT

DRUGS (1)
  1. EYLEA [Suspect]
     Active Substance: AFLIBERCEPT
     Indication: MACULAR DEGENERATION
     Dosage: 2 MG/0.05 ML PFS, EVERY FOUR WEEKS
     Route: 031

REACTIONS (3)
  - Visual acuity reduced [Unknown]
  - Wound secretion [Unknown]
  - Cataract [Recovered/Resolved]
